FAERS Safety Report 6247880-5 (Version None)
Quarter: 2009Q2

REPORT INFORMATION
  Report Type: 
  Country: None (occurrence: None)
  Receive Date: 20090626
  Receipt Date: 20090324
  Transmission Date: 20091009
  Serious: No
  Sender: FDA-Public Use
  Company Number: US-TYCO HEALTHCARE/MALLINCKRODT-T200900745

PATIENT
  Sex: Female

DRUGS (17)
  1. TECHNETIUM TC 99M SESTAMIBI [Suspect]
     Indication: SCAN
     Dosage: UNK
     Dates: start: 20090324, end: 20090324
  2. ADENOSCAN [Suspect]
     Indication: SCAN
     Dosage: 21 ML (64 MG), SINGLE
     Dates: start: 20090324, end: 20090324
  3. ULTRA-TECHNEKOW [Suspect]
     Indication: SCAN
     Dosage: 24.8 MCI, SINGLE
     Dates: start: 20090324, end: 20090324
  4. SALINE                             /00075401/ [Suspect]
     Indication: SCAN
     Dosage: 9 ML, SINGLE
     Dates: start: 20090324, end: 20090324
  5. PEPCID [Concomitant]
     Dosage: 40 MG, BID
     Route: 048
  6. LOVASTATIN [Concomitant]
     Dosage: 20 MG, QD
     Route: 048
  7. REGLAN [Concomitant]
     Dosage: 10 MG, QID (BEFORE MEALS AND AT BEDTIME)
     Route: 048
  8. HYOSCYAMINE SULFATE [Concomitant]
     Dosage: 0.125 MG, QD
     Route: 048
  9. LAMICTAL [Concomitant]
     Dosage: 200 MG, QD
     Route: 048
  10. DEXTROAMPETAMINE SULFATE TAB [Concomitant]
     Dosage: 20 MG, QD
     Route: 048
  11. GEODON                             /01487002/ [Concomitant]
     Dosage: 80 MG, QD
     Route: 048
  12. ZANTAC                             /00550802/ [Concomitant]
     Dosage: 150 MG, QD
     Route: 048
  13. FLONASE [Concomitant]
     Dosage: 50 UG, BID (INHALE 2X VIA NOSTRIL DAILY)
     Route: 045
  14. PANTOPRAZOLE SODIUM [Concomitant]
     Dosage: 40 MG, QD
     Route: 048
  15. EFFEXOR XR [Concomitant]
     Dosage: 150 MG, QD
     Route: 048
  16. DARVOCET A500 [Concomitant]
     Dosage: 100 - 500 MG AS DIRECTED
  17. XANAX [Concomitant]
     Dosage: 2 MG, AS DIRECTED

REACTIONS (2)
  - ABDOMINAL PAIN UPPER [None]
  - HEADACHE [None]
